FAERS Safety Report 14742457 (Version 2)
Quarter: 2018Q2

REPORT INFORMATION
  Report Type: Spontaneous
  Country: ES (occurrence: ES)
  Receive Date: 20180410
  Receipt Date: 20180413
  Transmission Date: 20180711
  Serious: Yes (Other)
  Sender: FDA-Public Use
  Company Number: ES-PFIZER INC-2018140179

PATIENT
  Age: 71 Year
  Sex: Female
  Weight: 88 kg

DRUGS (9)
  1. SEGURIL [Concomitant]
     Active Substance: FUROSEMIDE
     Dosage: 60 MG, DAILY
     Dates: start: 20180108
  2. ADALAT [Concomitant]
     Active Substance: NIFEDIPINE
     Dosage: 30 MG, 2X/DAY
     Dates: start: 20171128
  3. ALOPURINOL CINFA [Concomitant]
     Dosage: 100 MG, 1X/DAY
     Dates: start: 20171215
  4. LOBIVON [Concomitant]
     Active Substance: NEBIVOLOL HYDROCHLORIDE
     Dosage: 5 MG, 2X/DAY
     Dates: start: 20120202
  5. SIMVASTATINA CINFA [Concomitant]
     Dosage: 20 MG, DAILY
     Dates: start: 20130619
  6. BOSULIF [Suspect]
     Active Substance: BOSUTINIB MONOHYDRATE
     Indication: CHRONIC MYELOID LEUKAEMIA
     Dosage: 300 MG, 1X/DAY
     Route: 048
     Dates: start: 20171218
  7. ORFIDAL [Concomitant]
     Active Substance: LORAZEPAM
     Dosage: 1 MG, DAILY
     Dates: start: 20130430
  8. DOXAZOSINA NEO CINFA [Concomitant]
     Dosage: 4 MG, 2X/DAY
     Dates: start: 20171215
  9. OMEPRAZOL CINFAMED [Concomitant]
     Dosage: 20 MG, 1X/DAY
     Dates: start: 20130430

REACTIONS (1)
  - Atrial fibrillation [Recovered/Resolved]

NARRATIVE: CASE EVENT DATE: 20180209
